FAERS Safety Report 10517438 (Version 2)
Quarter: 2015Q3

REPORT INFORMATION
  Report Type: Spontaneous
  Country: TR (occurrence: TR)
  Receive Date: 20141014
  Receipt Date: 20150901
  Transmission Date: 20151125
  Serious: Yes (Death, Hospitalization, Congenital Anomaly)
  Sender: FDA-Public Use
  Company Number: TR-NOVEN-14TR010519

PATIENT
  Sex: Male
  Weight: 2.4 kg

DRUGS (1)
  1. PAROXETINE [Suspect]
     Active Substance: PAROXETINE\PAROXETINE HYDROCHLORIDE
     Indication: PRODUCT USED FOR UNKNOWN INDICATION
     Dosage: UNK
     Route: 064

REACTIONS (8)
  - Congenital great vessel anomaly [Fatal]
  - Atrial septal defect [Fatal]
  - Congenital pulmonary valve atresia [Fatal]
  - Cardiac arrest [Fatal]
  - Ventricular septal defect [Fatal]
  - Foetal exposure during pregnancy [Fatal]
  - Mandibulofacial dysostosis [Fatal]
  - Deafness bilateral [Fatal]
